FAERS Safety Report 25385598 (Version 1)
Quarter: 2025Q2

REPORT INFORMATION
  Report Type: Spontaneous
  Country: TR (occurrence: None)
  Receive Date: 20250601
  Receipt Date: 20250601
  Transmission Date: 20250717
  Serious: Yes (Other)
  Sender: FDA-CTU
  Company Number: None

PATIENT
  Age: 21 Year
  Sex: Male
  Weight: 80 kg

DRUGS (7)
  1. PAROXETINE [Suspect]
     Active Substance: PAROXETINE
     Indication: Social anxiety disorder
     Dosage: OTHER QUANTITY : 1 TABLET(S);?FREQUENCY : 3 TIMES A DAY;?
     Route: 048
     Dates: start: 20200331, end: 20250307
  2. PAROXETINE [Suspect]
     Active Substance: PAROXETINE
     Indication: Generalised anxiety disorder
  3. PAROXETINE [Suspect]
     Active Substance: PAROXETINE
     Indication: Panic disorder
  4. BUPROPION [Suspect]
     Active Substance: BUPROPION
  5. SERTRALINE [Suspect]
     Active Substance: SERTRALINE HYDROCHLORIDE
  6. FEXOFENADINE [Concomitant]
     Active Substance: FEXOFENADINE HYDROCHLORIDE
  7. Beclomethhasone dipropionate nasal spray [Concomitant]

REACTIONS (12)
  - Drug resistance [None]
  - Therapy change [None]
  - Anxiety [None]
  - Palpitations [None]
  - Withdrawal syndrome [None]
  - Semen liquefaction abnormal [None]
  - Loss of libido [None]
  - Sexual dysfunction [None]
  - Erectile dysfunction [None]
  - Emotional disorder [None]
  - Anhedonia [None]
  - Crying [None]

NARRATIVE: CASE EVENT DATE: 20200620
